FAERS Safety Report 24530273 (Version 2)
Quarter: 2024Q4

REPORT INFORMATION
  Report Type: Report from Study
  Country: CA (occurrence: CA)
  Receive Date: 20241021
  Receipt Date: 20241226
  Transmission Date: 20250114
  Serious: Yes (Other)
  Sender: NOVARTIS
  Company Number: CA-002147023-NVSC2023CA224779

PATIENT
  Sex: Female

DRUGS (1)
  1. KESIMPTA [Suspect]
     Active Substance: OFATUMUMAB
     Indication: Relapsing-remitting multiple sclerosis
     Dosage: 20 MG, QMO
     Route: 058
     Dates: start: 20231015

REACTIONS (9)
  - Infection [Unknown]
  - Haematoma [Unknown]
  - Suture related complication [Unknown]
  - Pain [Unknown]
  - Influenza like illness [Recovered/Resolved]
  - Body temperature decreased [Recovered/Resolved]
  - Nasopharyngitis [Unknown]
  - Malaise [Unknown]
  - Postoperative wound infection [Unknown]

NARRATIVE: CASE EVENT DATE: 20231015
